FAERS Safety Report 5969358-6 (Version None)
Quarter: 2008Q4

REPORT INFORMATION
  Report Type: 
  Country: None (occurrence: None)
  Receive Date: 20081126
  Receipt Date: 20081120
  Transmission Date: 20090506
  Serious: Yes (Hospitalization)
  Sender: FDA-Public Use
  Company Number: US-GENENTECH-272197

PATIENT
  Sex: Female

DRUGS (2)
  1. BEVACIZUMAB [Suspect]
     Indication: NEUROENDOCRINE CARCINOMA
     Dosage: 15 MG/KG, Q21D
     Route: 042
  2. RAD001 [Concomitant]
     Indication: NEUROENDOCRINE CARCINOMA
     Dosage: 10 MG, Q21D
     Route: 048

REACTIONS (2)
  - DEHYDRATION [None]
  - GASTROENTERITIS [None]
